FAERS Safety Report 13563035 (Version 1)
Quarter: 2017Q2

REPORT INFORMATION
  Report Type: Spontaneous
  Country: TH (occurrence: TH)
  Receive Date: 20170519
  Receipt Date: 20170519
  Transmission Date: 20170830
  Serious: Yes (Other)
  Sender: FDA-Public Use
  Company Number: PHHY2017TH069634

PATIENT
  Age: 52 Year
  Sex: Female

DRUGS (1)
  1. LETROZOLE. [Suspect]
     Active Substance: LETROZOLE
     Indication: BREAST CANCER METASTATIC
     Dosage: UNK
     Route: 065
     Dates: start: 201604

REACTIONS (8)
  - Metastases to bone [Unknown]
  - Metastases to skin [Unknown]
  - Metastases to pleura [Unknown]
  - Pleural effusion [Unknown]
  - Breast cancer metastatic [Unknown]
  - Pulmonary mass [Unknown]
  - Malignant neoplasm progression [Unknown]
  - Pathological fracture [Unknown]

NARRATIVE: CASE EVENT DATE: 201604
